FAERS Safety Report 20155318 (Version 2)
Quarter: 2022Q1

REPORT INFORMATION
  Report Type: Spontaneous
  Country: BG (occurrence: BG)
  Receive Date: 20211207
  Receipt Date: 20220110
  Transmission Date: 20220423
  Serious: Yes (Other)
  Sender: FDA-Public Use
  Company Number: BG-ASTELLAS-2021US046584

PATIENT
  Age: 76 Year
  Sex: Male

DRUGS (1)
  1. SOLIFENACIN [Suspect]
     Active Substance: SOLIFENACIN
     Indication: Product used for unknown indication
     Dosage: UNK UNK, UNKNOWN FREQ.
     Route: 065

REACTIONS (2)
  - Hydronephrosis [Recovered/Resolved]
  - Therapy non-responder [Unknown]
